FAERS Safety Report 10530175 (Version 1)
Quarter: 2014Q4

REPORT INFORMATION
  Report Type: Spontaneous
  Country: BR (occurrence: BR)
  Receive Date: 20141021
  Receipt Date: 20141021
  Transmission Date: 20150528
  Serious: Yes (Hospitalization)
  Sender: FDA-Public Use
  Company Number: BR-ELI_LILLY_AND_COMPANY-BR201410006016

PATIENT
  Sex: Male

DRUGS (4)
  1. HUMULIN N [Suspect]
     Active Substance: INSULIN HUMAN
     Dosage: 40 IU, EACH EVENING
     Route: 058
  2. HUMULIN N [Suspect]
     Active Substance: INSULIN HUMAN
     Indication: DIABETES MELLITUS
     Dosage: 10 IU, TID
     Route: 058
  3. HUMULIN N [Suspect]
     Active Substance: INSULIN HUMAN
     Dosage: 50 IU, EACH MORNING
     Route: 058
  4. HUMULIN N [Suspect]
     Active Substance: INSULIN HUMAN
     Dosage: 20 IU, QD
     Route: 058

REACTIONS (1)
  - Blood glucose increased [Recovering/Resolving]
